FAERS Safety Report 24980225 (Version 1)
Quarter: 2025Q1

REPORT INFORMATION
  Report Type: Spontaneous
  Country: CA (occurrence: CA)
  Receive Date: 20250218
  Receipt Date: 20250218
  Transmission Date: 20250408
  Serious: Yes (Other)
  Sender: ACCORD
  Company Number: None

PATIENT

DRUGS (1)
  1. ESCITALOPRAM [Suspect]
     Active Substance: ESCITALOPRAM OXALATE
     Indication: Insomnia

REACTIONS (37)
  - Asthenia [Unknown]
  - Cough [Unknown]
  - Erythema [Unknown]
  - Faeces discoloured [Unknown]
  - Hypoaesthesia [Unknown]
  - Increased insulin requirement [Unknown]
  - Malaise [Unknown]
  - Urine flow decreased [Unknown]
  - Electric shock sensation [Unknown]
  - Hepatic lesion [Unknown]
  - Lung hyperinflation [Unknown]
  - Mood altered [Unknown]
  - Pollakiuria [Unknown]
  - Serotonin deficiency [Unknown]
  - Weight decreased [Unknown]
  - Appetite disorder [Unknown]
  - Bedridden [Unknown]
  - Change of bowel habit [Unknown]
  - Diabetes mellitus inadequate control [Unknown]
  - Insomnia [Unknown]
  - Nausea [Unknown]
  - Penis disorder [Unknown]
  - Blood testosterone decreased [Unknown]
  - Infrequent bowel movements [Unknown]
  - Muscle twitching [Unknown]
  - Pain [Unknown]
  - Urine abnormality [Unknown]
  - Irregular breathing [Unknown]
  - Disturbance in attention [Unknown]
  - Impaired quality of life [Unknown]
  - Loss of libido [Unknown]
  - Temperature regulation disorder [Unknown]
  - Arthralgia [Unknown]
  - Dysphagia [Unknown]
  - Headache [Unknown]
  - Sinonasal obstruction [Unknown]
  - Tongue coated [Unknown]
